FAERS Safety Report 26168805 (Version 1)
Quarter: 2025Q4

REPORT INFORMATION
  Report Type: Spontaneous
  Country: US (occurrence: US)
  Receive Date: 20251217
  Receipt Date: 20251217
  Transmission Date: 20260118
  Serious: No
  Sender: PACIRA
  Company Number: US-ORG100016242-2025000209

PATIENT
  Age: 31 Year
  Sex: Female

DRUGS (4)
  1. EXPAREL [Suspect]
     Active Substance: BUPIVACAINE
     Indication: Caesarean section
     Dosage: WITH PICO DRESSING
     Route: 065
     Dates: start: 20250606, end: 20250606
  2. DEVICE [Suspect]
     Active Substance: DEVICE
     Indication: Caesarean section
     Dosage: 15 MIN AFTER EXPAREL ADMINISTRATION
     Route: 065
     Dates: start: 20250606, end: 20250606
  3. BUPIVACAINE HYDROCHLORIDE [Suspect]
     Active Substance: BUPIVACAINE HYDROCHLORIDE
     Indication: Caesarean section
     Dosage: 0.5% WITH EXPAREL, SALINE AND PICO
     Route: 065
     Dates: start: 20250606, end: 20250606
  4. SALINE [Suspect]
     Active Substance: SODIUM CHLORIDE
     Indication: Caesarean section
     Dosage: WITH EXPAREL, BUPIVACAINE 0.5% AND PICO
     Route: 065
     Dates: start: 20250606, end: 20250606

REACTIONS (1)
  - Therapeutic response shortened [Unknown]

NARRATIVE: CASE EVENT DATE: 20250606
